FAERS Safety Report 8635023 (Version 5)
Quarter: 2014Q1

REPORT INFORMATION
  Report Type: Spontaneous
  Country: US (occurrence: US)
  Receive Date: 20120626
  Receipt Date: 20140320
  Transmission Date: 20141002
  Serious: Yes (Hospitalization)
  Sender: FDA-Public Use
  Company Number: US-B.I. PHARMACEUTICALS,INC./RIDGEFIELD-2012-BP-13977BP

PATIENT
  Sex: Male
  Weight: 95.25 kg

DRUGS (7)
  1. PRADAXA [Suspect]
     Indication: ATRIAL FIBRILLATION
     Route: 065
     Dates: start: 201104, end: 20110629
  2. RAMRIL [Concomitant]
     Route: 065
  3. PROTONIX [Concomitant]
     Route: 065
     Dates: start: 201107
  4. POTASSIUM [Concomitant]
     Route: 065
  5. XANAX [Concomitant]
     Route: 065
  6. LORTAB [Concomitant]
     Route: 065
  7. TOPROL [Concomitant]

REACTIONS (9)
  - Haemoptysis [Unknown]
  - Rectal haemorrhage [Unknown]
  - Fall [Unknown]
  - Pneumothorax [Unknown]
  - Gastrointestinal haemorrhage [Unknown]
  - Myocardial infarction [Unknown]
  - Epistaxis [Unknown]
  - Respiratory failure [Unknown]
  - Rectal haemorrhage [Unknown]
